FAERS Safety Report 15297319 (Version 2)
Quarter: 2018Q3

REPORT INFORMATION
  Report Type: Report from Study
  Country: BR (occurrence: BR)
  Receive Date: 20180820
  Receipt Date: 20180828
  Transmission Date: 20181010
  Serious: Yes (Hospitalization, Other)
  Sender: FDA-Public Use
  Company Number: PHHY2016BR041451

PATIENT
  Sex: Male
  Weight: 94 kg

DRUGS (6)
  1. CABERGOLINA [Concomitant]
     Active Substance: CABERGOLINE
     Indication: ACROMEGALY
     Dosage: 2 DF, QW (2 TABLETS PER WEEK)
     Route: 065
  2. CABERGOLINA [Concomitant]
     Active Substance: CABERGOLINE
     Dosage: 1 DF, 3 TIMES A WEEK
  3. LOSARTAN. [Concomitant]
     Active Substance: LOSARTAN
     Indication: HYPERTENSION
     Dosage: 2 DF, QD
     Route: 048
  4. APRESOLINA [Suspect]
     Active Substance: HYDRALAZINE HYDROCHLORIDE
     Indication: HYPERTENSION
     Dosage: 25 MG, UNK
     Route: 048
  5. CABERGOLINA [Concomitant]
     Active Substance: CABERGOLINE
     Dosage: 5 MG, UNK
     Route: 065
  6. SANDOSTATIN LAR DEPOT [Suspect]
     Active Substance: OCTREOTIDE ACETATE
     Indication: ACROMEGALY
     Dosage: 30 MG, QMO (ONCE A MONTH)
     Route: 030
     Dates: start: 201401

REACTIONS (17)
  - Pollakiuria [Unknown]
  - Depressed mood [Unknown]
  - Abnormal behaviour [Unknown]
  - Gastrointestinal disorder [Recovering/Resolving]
  - Arthralgia [Not Recovered/Not Resolved]
  - Feeling abnormal [Unknown]
  - Gait disturbance [Not Recovered/Not Resolved]
  - Asthenia [Unknown]
  - Affective disorder [Unknown]
  - Osteoporosis [Unknown]
  - Pain [Unknown]
  - Memory impairment [Unknown]
  - Intestinal mass [Unknown]
  - Fatigue [Unknown]
  - Pain in extremity [Not Recovered/Not Resolved]
  - Nervousness [Unknown]
  - Mass [Unknown]
